FAERS Safety Report 9677356 (Version 1)
Quarter: 2013Q4

REPORT INFORMATION
  Report Type: Spontaneous
  Country: NL (occurrence: NL)
  Receive Date: 20131108
  Receipt Date: 20131108
  Transmission Date: 20140711
  Serious: Yes (Other)
  Sender: FDA-Public Use
  Company Number: NL-ASTRAZENECA-2013SE80471

PATIENT
  Sex: 0

DRUGS (1)
  1. QUETIAPINE [Suspect]
     Route: 048

REACTIONS (1)
  - Blood cortisol decreased [Recovered/Resolved]
